FAERS Safety Report 4579691-0 (Version None)
Quarter: 2005Q1

REPORT INFORMATION
  Report Type: 
  Country: None (occurrence: None)
  Receive Date: 20050214
  Receipt Date: 20050202
  Transmission Date: 20050727
  Serious: Yes (Other)
  Sender: FDA-Public Use
  Company Number: FR-ABBOTT-05P-056-0290211-00

PATIENT
  Sex: Female

DRUGS (4)
  1. DEPAKENE [Suspect]
     Indication: EPILEPSY
     Route: 048
  2. CARBAMAZEPINE [Suspect]
     Indication: EPILEPSY
  3. CARBAMAZEPINE [Suspect]
  4. CLONAZEPAM [Suspect]
     Indication: EPILEPSY
     Dates: end: 20021118

REACTIONS (1)
  - STATUS EPILEPTICUS [None]
